FAERS Safety Report 6210315-2 (Version None)
Quarter: 2009Q2

REPORT INFORMATION
  Report Type: 
  Country: None (occurrence: None)
  Receive Date: 20090601
  Receipt Date: 20090530
  Transmission Date: 20091009
  Serious: Yes (Death, Life-Threatening, Hospitalization, Other)
  Sender: FDA-Public Use
  Company Number: CA-ABBOTT-09P-028-0502770-00

PATIENT
  Age: 66 Year
  Sex: Male
  Weight: 59.02 kg

DRUGS (3)
  1. HUMIRA [Suspect]
     Indication: RHEUMATOID ARTHRITIS
     Route: 058
     Dates: start: 20071129, end: 20090114
  2. REMICADE [Concomitant]
     Indication: DRUG USE FOR UNKNOWN INDICATION
     Dates: start: 20010727, end: 20040722
  3. ISONIAZID [Concomitant]
     Indication: ANTIBIOTIC PROPHYLAXIS
     Dates: start: 20010620, end: 20020402

REACTIONS (5)
  - ABDOMINAL DISCOMFORT [None]
  - FATIGUE [None]
  - HAEMOGLOBIN DECREASED [None]
  - NON-SMALL CELL LUNG CANCER STAGE IV [None]
  - WEIGHT DECREASED [None]
